FAERS Safety Report 10628308 (Version 1)
Quarter: 2014Q4

REPORT INFORMATION
  Report Type: Spontaneous
  Country: US (occurrence: US)
  Receive Date: 20141205
  Receipt Date: 20141205
  Transmission Date: 20150529
  Serious: Yes (Disabling)
  Sender: FDA-Public Use
  Company Number: US-BRISTOL-MYERS SQUIBB COMPANY-21667340

PATIENT

DRUGS (2)
  1. ELIQUIS [Suspect]
     Active Substance: APIXABAN
  2. COUMADIN [Suspect]
     Active Substance: WARFARIN SODIUM
     Dosage: 20MG TWICE A WEEK, FOLLOWED BY 15MG ON THE OTHER DAYS OF THE WEEK

REACTIONS (1)
  - International normalised ratio abnormal [Unknown]
